FAERS Safety Report 9784511 (Version 1)
Quarter: 2013Q4

REPORT INFORMATION
  Report Type: Spontaneous
  Country: NL (occurrence: NL)
  Receive Date: 20131226
  Receipt Date: 20131226
  Transmission Date: 20140711
  Serious: Yes (Hospitalization)
  Sender: FDA-Public Use
  Company Number: NL-TEVA-452693ISR

PATIENT
  Age: 32 Year
  Sex: Male
  Weight: 120 kg

DRUGS (3)
  1. VINCRISTINE INJVLST 1MG/ML [Suspect]
     Indication: HODGKIN^S DISEASE
     Dosage: 1 A MONTH 1 PIECE,SOMETIMES :MORE TIME BETWEEN DOSES
     Route: 042
     Dates: start: 19770224, end: 19771212
  2. MITOMYCINE INJECTIEPOEDER 2MG [Suspect]
     Indication: HODGKIN^S DISEASE
     Dosage: POWDER FOR SOLUTION FOR INJECTION
     Route: 042
     Dates: start: 1977, end: 19771212
  3. NATULAN CAPSULE 50MG [Concomitant]
     Dosage: ONCE A MONTH 8 PIECES
     Route: 048
     Dates: start: 19770201, end: 19801212

REACTIONS (1)
  - Cardiac failure [Recovered/Resolved with Sequelae]
